FAERS Safety Report 7856308-0 (Version None)
Quarter: 2011Q4

REPORT INFORMATION
  Report Type: 
  Country: None (occurrence: None)
  Receive Date: 20111026
  Receipt Date: 20110803
  Transmission Date: 20120403
  Serious: Yes (Other)
  Sender: FDA-Public Use
  Company Number: PHHY2011JP69234

PATIENT
  Age: 9 Year
  Sex: Female

DRUGS (2)
  1. OXCARBAZEPINE [Suspect]
     Indication: PARTIAL SEIZURES
     Route: 048
  2. LEVETIRACETAM [Suspect]
     Indication: PARTIAL SEIZURES
     Route: 048

REACTIONS (5)
  - AGGRESSION [None]
  - PETIT MAL EPILEPSY [None]
  - CONVULSION [None]
  - PSEUDOBULBAR PALSY [None]
  - PARTIAL SEIZURES [None]
